FAERS Safety Report 9234329 (Version 2)
Quarter: 2013Q2

REPORT INFORMATION
  Report Type: Report from Study
  Country: CA (occurrence: CA)
  Receive Date: 20130416
  Receipt Date: 20130423
  Transmission Date: 20140414
  Serious: Yes (Hospitalization, Other)
  Sender: FDA-Public Use
  Company Number: CA-ABBOTT-13P-028-1075883-00

PATIENT
  Sex: Female
  Weight: 40.86 kg

DRUGS (2)
  1. HUMIRA [Suspect]
     Indication: CROHN^S DISEASE
     Route: 058
     Dates: start: 20100430, end: 20130129
  2. HUMIRA [Suspect]
     Dates: start: 20130324

REACTIONS (5)
  - Nephrolithiasis [Unknown]
  - Kidney infection [Unknown]
  - Nasopharyngitis [Unknown]
  - Sinus disorder [Unknown]
  - Sinus headache [Unknown]
